FAERS Safety Report 4967174-5 (Version None)
Quarter: 2006Q2

REPORT INFORMATION
  Report Type: 
  Country: None (occurrence: None)
  Receive Date: 20060410
  Receipt Date: 20060328
  Transmission Date: 20061013
  Serious: No
  Sender: FDA-Public Use
  Company Number: 2006PK00615

PATIENT
  Age: 755 Month
  Sex: Female
  Weight: 57 kg

DRUGS (4)
  1. ARIMIDEX [Suspect]
     Indication: BREAST CANCER
     Dates: start: 20050502, end: 20060320
  2. THYREX [Concomitant]
     Indication: HYPOTHYROIDISM
  3. CALCIUM GLUCONATE [Concomitant]
     Indication: OSTEOPOROSIS
  4. VITAMINE D [Concomitant]

REACTIONS (4)
  - ARTHRALGIA [None]
  - ARTHROPATHY [None]
  - HAIR GROWTH ABNORMAL [None]
  - NAIL DISORDER [None]
